FAERS Safety Report 9032252 (Version 1)
Quarter: 2013Q1

REPORT INFORMATION
  Report Type: Spontaneous
  Country: FR (occurrence: FR)
  Receive Date: 20130122
  Receipt Date: 20130122
  Transmission Date: 20140127
  Serious: Yes (Hospitalization)
  Sender: FDA-Public Use
  Company Number: FR-SANOFI-AVENTIS-2013SA004126

PATIENT
  Age: 70 Year
  Sex: Male

DRUGS (17)
  1. CLOPIDOGREL BISULFATE [Suspect]
     Indication: PRODUCT USED FOR UNKNOWN INDICATION
     Route: 065
  2. KARDEGIC [Suspect]
     Indication: PRODUCT USED FOR UNKNOWN INDICATION
     Route: 065
     Dates: start: 20101002, end: 201107
  3. PLAVIX [Concomitant]
     Route: 048
     Dates: start: 20101001, end: 20101001
  4. PLAVIX [Concomitant]
     Route: 048
     Dates: start: 20101002
  5. INEXIUM [Concomitant]
     Route: 048
     Dates: start: 20101001
  6. TRIATEC [Concomitant]
     Route: 048
     Dates: start: 20101002
  7. AMAREL [Concomitant]
     Route: 048
     Dates: start: 20101002
  8. CARDENSIEL [Concomitant]
     Route: 048
     Dates: start: 20101002
  9. ADANCOR [Concomitant]
     Route: 048
  10. MEDROL [Concomitant]
     Route: 048
     Dates: start: 20101002
  11. OMEPRAZOLE [Concomitant]
     Route: 048
     Dates: start: 20110704
  12. MEPROBAMATE [Concomitant]
     Route: 048
     Dates: start: 201107
  13. PHLOROGLUCINOL [Concomitant]
     Route: 048
     Dates: start: 201107
  14. MORPHINE [Concomitant]
     Route: 048
     Dates: start: 201107
  15. DICLOFENAC [Concomitant]
     Route: 061
     Dates: start: 20110705
  16. TERBINAFINE HYDROCHLORIDE [Concomitant]
     Dosage: DAILY DOSE: CONTINUOUS
     Route: 061
     Dates: start: 20110705
  17. ALEGLITAZAR [Concomitant]
     Route: 048
     Dates: start: 20101104

REACTIONS (1)
  - Anaemia [Unknown]
